FAERS Safety Report 4749040-3 (Version None)
Quarter: 2005Q3

REPORT INFORMATION
  Report Type: 
  Country: None (occurrence: None)
  Receive Date: 20050819
  Receipt Date: 20050811
  Transmission Date: 20060218
  Serious: Yes (Other)
  Sender: FDA-Public Use
  Company Number: NL-JNJFOC-20050802993

PATIENT
  Sex: Female

DRUGS (7)
  1. PROPULSID [Suspect]
     Route: 048
  2. LOMIR SRO [Concomitant]
     Route: 048
     Dates: start: 20000707
  3. LEVONORGESTREL AND ETHINYL ESTRADIOL [Concomitant]
     Route: 048
     Dates: start: 20000712
  4. LEVONORGESTREL AND ETHINYL ESTRADIOL [Concomitant]
     Route: 048
     Dates: start: 20000712
  5. LIVOCAB [Concomitant]
     Route: 065
     Dates: start: 20000807
  6. LORAZEPAM [Concomitant]
     Route: 048
     Dates: start: 20000809
  7. TEMAZEPAM [Concomitant]
     Route: 048
     Dates: start: 20000809

REACTIONS (2)
  - DYSPNOEA [None]
  - PALPITATIONS [None]
